FAERS Safety Report 5382316-8 (Version None)
Quarter: 2007Q3

REPORT INFORMATION
  Report Type: 
  Country: None (occurrence: None)
  Receive Date: 20070709
  Receipt Date: 20070703
  Transmission Date: 20080115
  Serious: Yes (Other)
  Sender: FDA-Public Use
  Company Number: JP-BOEHRINGER INGELHEIM PHARMACEUTICALS, INC.-2007-BP-16810YA

PATIENT
  Age: 72 Year
  Sex: Male

DRUGS (8)
  1. HARNAL [Suspect]
     Indication: BENIGN PROSTATIC HYPERPLASIA
     Route: 048
     Dates: start: 20030729
  2. TAMSULOSIN HCL [Suspect]
     Indication: BENIGN PROSTATIC HYPERPLASIA
     Route: 048
  3. ZOLPIDEM [Suspect]
     Route: 048
     Dates: start: 20030424, end: 20070601
  4. SOLANAX [Concomitant]
     Route: 048
     Dates: start: 20011011
  5. URSO 250 [Concomitant]
     Route: 048
     Dates: start: 20020830
  6. LAC B [Concomitant]
     Route: 048
     Dates: start: 20020205
  7. NORVASC [Concomitant]
     Route: 048
     Dates: start: 19991203
  8. KEISHIBUKURYOUGAN [Concomitant]
     Route: 048
     Dates: start: 20060313

REACTIONS (1)
  - CONFUSIONAL STATE [None]
